FAERS Safety Report 19206037 (Version 4)
Quarter: 2025Q2

REPORT INFORMATION
  Report Type: Spontaneous
  Country: ES (occurrence: ES)
  Receive Date: 20210503
  Receipt Date: 20250426
  Transmission Date: 20250716
  Serious: Yes (Hospitalization, Other)
  Sender: AUROBINDO
  Company Number: ES-JNJFOC-20210410414

PATIENT
  Age: 27 Year
  Sex: Female

DRUGS (14)
  1. SILDENAFIL [Suspect]
     Active Substance: SILDENAFIL
     Indication: Dyspnoea
     Route: 065
  2. SILDENAFIL [Suspect]
     Active Substance: SILDENAFIL
     Indication: Pulmonary hypertension
  3. VELETRI [Suspect]
     Active Substance: EPOPROSTENOL
     Indication: Dyspnoea
     Route: 065
  4. VELETRI [Suspect]
     Active Substance: EPOPROSTENOL
     Indication: Pulmonary hypertension
  5. PREDNISONE [Suspect]
     Active Substance: PREDNISONE
     Indication: Product used for unknown indication
     Route: 065
  6. AZATHIOPRINE [Suspect]
     Active Substance: AZATHIOPRINE
     Indication: Product used for unknown indication
     Route: 065
  7. ASPIRIN [Suspect]
     Active Substance: ASPIRIN
     Indication: Product used for unknown indication
     Route: 065
  8. HEPARIN [Suspect]
     Active Substance: HEPARIN SODIUM
     Indication: Product used for unknown indication
     Route: 065
  9. HYDROXYCHLOROQUINE [Suspect]
     Active Substance: HYDROXYCHLOROQUINE
     Indication: Product used for unknown indication
     Route: 065
  10. VITAMIN D [Suspect]
     Active Substance: VITAMIN D NOS
     Indication: Product used for unknown indication
     Route: 065
  11. SOLIRIS [Suspect]
     Active Substance: ECULIZUMAB
     Indication: Thrombotic microangiopathy
     Route: 065
  12. SOLIRIS [Suspect]
     Active Substance: ECULIZUMAB
     Route: 065
  13. ECULIZUMAB [Concomitant]
     Active Substance: ECULIZUMAB
     Indication: Product used for unknown indication
     Route: 065
  14. ECULIZUMAB [Concomitant]
     Active Substance: ECULIZUMAB
     Route: 065

REACTIONS (3)
  - Exposure during pregnancy [Recovered/Resolved]
  - Haemoperitoneum [Unknown]
  - Premature labour [Recovered/Resolved]
